FAERS Safety Report 7293214-7 (Version None)
Quarter: 2011Q1

REPORT INFORMATION
  Report Type: 
  Country: None (occurrence: None)
  Receive Date: 20110215
  Receipt Date: 20110208
  Transmission Date: 20110831
  Serious: Yes (Hospitalization)
  Sender: FDA-Public Use
  Company Number: DE-PFIZER INC-DE-WYE-H09556209

PATIENT
  Age: 68 Year
  Sex: Female
  Weight: 61 kg

DRUGS (12)
  1. AVELOX [Interacting]
     Indication: CYSTITIS
     Dosage: 400.0 MG, 1X/DAY
     Route: 048
     Dates: start: 20090408, end: 20090413
  2. DILTIAZEM [Concomitant]
     Indication: HYPERTENSION
     Dosage: 90 MG, 3X/DAY
     Route: 048
  3. FERRO-FOLSAN [Concomitant]
     Indication: NORMOCHROMIC NORMOCYTIC ANAEMIA
     Dosage: UNK
     Route: 048
  4. TOREM [Concomitant]
     Indication: OEDEMA DUE TO CARDIAC DISEASE
     Dosage: 5 MG, 1X/DAY
     Route: 048
     Dates: end: 20090401
  5. DURAGESIC-100 [Concomitant]
     Indication: PAIN
     Dosage: 1 DF, 3X/DAY
     Route: 062
  6. NOVALGIN [Concomitant]
     Indication: PAIN
     Dosage: 500 MG, 3X/DAY
     Route: 048
  7. DIGITOXIN [Concomitant]
     Indication: CARDIAC FAILURE CHRONIC
     Dosage: 0.07 MG, 1X/DAY
     Route: 048
  8. CLEXANE [Concomitant]
     Indication: THROMBOSIS PROPHYLAXIS
     Dosage: 60 MG, 1X/DAY
     Route: 058
  9. LACTULOSE [Concomitant]
     Indication: CONSTIPATION
     Dosage: 5 MG, 1X/DAY
     Route: 048
     Dates: end: 20090401
  10. DIPIPERON [Concomitant]
     Indication: VASCULAR DEMENTIA
     Dosage: 20 MG, 4X/DAY
     Route: 048
  11. PANTOPRAZOLE [Suspect]
     Indication: PROPHYLAXIS AGAINST GASTROINTESTINAL ULCER
     Dosage: 40.0 MG, 1X/DAY
     Route: 048
  12. REMINYL [Concomitant]
     Indication: VASCULAR DEMENTIA
     Dosage: 8 MG, 1X/DAY
     Route: 048

REACTIONS (2)
  - CLOSTRIDIUM DIFFICILE COLITIS [None]
  - DRUG INTERACTION [None]
